FAERS Safety Report 14853417 (Version 1)
Quarter: 2018Q2

REPORT INFORMATION
  Report Type: Spontaneous
  Country: US (occurrence: US)
  Receive Date: 20180420
  Receipt Date: 20180420
  Transmission Date: 20180711
  Serious: Yes (Other)
  Sender: FDA-Public Use
  Company Number: None

PATIENT
  Age: 59 Year
  Sex: Male
  Weight: 166.5 kg

DRUGS (8)
  1. B-6 [Concomitant]
  2. PREVACID [Concomitant]
     Active Substance: LANSOPRAZOLE
  3. FISH OIL [Concomitant]
     Active Substance: FISH OIL
  4. ANDROGEL 1.62% [Suspect]
     Active Substance: TESTOSTERONE
     Indication: BLOOD TESTOSTERONE ABNORMAL
     Dosage: QUANTITY:2 SPRAY(S);?
     Route: 061
     Dates: start: 20180405, end: 20180408
  5. INSULIN [Concomitant]
     Active Substance: INSULIN NOS
  6. VITAMIN B12 [Concomitant]
     Active Substance: CYANOCOBALAMIN
  7. METFORMIN [Concomitant]
     Active Substance: METFORMIN HYDROCHLORIDE
  8. LISINIPRIL [Concomitant]
     Active Substance: LISINOPRIL

REACTIONS (2)
  - Application site pruritus [None]
  - Application site vesicles [None]

NARRATIVE: CASE EVENT DATE: 20180408
